FAERS Safety Report 12237951 (Version 1)
Quarter: 2016Q2

REPORT INFORMATION
  Report Type: Spontaneous
  Country: US (occurrence: None)
  Receive Date: 20160404
  Receipt Date: 20160404
  Transmission Date: 20160815
  Serious: No
  Sender: FDA-Public Use
  Company Number: None

PATIENT
  Age: 68 Year
  Sex: Male

DRUGS (3)
  1. BUPROPRION, 100MG [Suspect]
     Active Substance: BUPROPION
     Indication: INSOMNIA
     Route: 048
     Dates: start: 20020510, end: 20020606
  2. BUPROPRION, 100MG [Suspect]
     Active Substance: BUPROPION
     Indication: DEPRESSION
     Route: 048
     Dates: start: 20020510, end: 20020606
  3. TEMAZEPAM. [Concomitant]
     Active Substance: TEMAZEPAM

REACTIONS (2)
  - Asthenia [None]
  - Product substitution issue [None]

NARRATIVE: CASE EVENT DATE: 20020510
